FAERS Safety Report 12760930 (Version 2)
Quarter: 2016Q4

REPORT INFORMATION
  Report Type: Spontaneous
  Country: JP (occurrence: JP)
  Receive Date: 20160919
  Receipt Date: 20161101
  Transmission Date: 20170207
  Serious: Yes (Hospitalization)
  Sender: FDA-Public Use
  Company Number: JP-TEVA-693028ISR

PATIENT
  Age: 60 Year
  Sex: Male
  Weight: 56.1 kg

DRUGS (3)
  1. CAPECITABINE. [Suspect]
     Active Substance: CAPECITABINE
     Indication: ADENOCARCINOMA
     Dosage: 3000 MG (DAYS 1-14); TOGA REGIMEN
     Route: 048
  2. CISPLATIN. [Suspect]
     Active Substance: CISPLATIN
     Indication: ADENOCARCINOMA
     Dosage: 130 MG (DAY 1); TOGA REGIMEN
     Route: 065
  3. TRASTUZUMAB [Suspect]
     Active Substance: TRASTUZUMAB
     Indication: ADENOCARCINOMA
     Dosage: 448.8 MG (DAY 1) / BODY EVERY 3 WEEKS; TOGA REGIMEN
     Route: 065

REACTIONS (1)
  - Oesophageal perforation [Recovered/Resolved]
